FAERS Safety Report 17211313 (Version 1)
Quarter: 2019Q4

REPORT INFORMATION
  Report Type: Report from Study
  Country: US (occurrence: US)
  Receive Date: 20191228
  Receipt Date: 20191228
  Transmission Date: 20200122
  Serious: Yes (Hospitalization)
  Sender: FDA-Public Use
  Company Number: US-UCBSA-2019033800

PATIENT
  Age: 30 Year
  Sex: Female

DRUGS (5)
  1. BRIVIACT [Suspect]
     Active Substance: BRIVARACETAM
     Dosage: OVERDOSED
  2. LACOSAMIDE. [Suspect]
     Active Substance: LACOSAMIDE
     Dosage: 100MG ONE TABLET EVERY EVENING AND 150MG ONE TABLET EVERY MORNING
  3. BRIVIACT [Suspect]
     Active Substance: BRIVARACETAM
     Indication: PRODUCT USED FOR UNKNOWN INDICATION
     Dosage: 50MG ONE TABLET IN THE MORNING AND 100 MG EVENING
  4. LACOSAMIDE. [Suspect]
     Active Substance: LACOSAMIDE
     Dosage: OVERDOSED
  5. LACOSAMIDE. [Suspect]
     Active Substance: LACOSAMIDE
     Indication: EPILEPSY
     Dosage: A HIGHER DOSAGE

REACTIONS (3)
  - Off label use [Unknown]
  - Hallucination [Recovered/Resolved]
  - Overdose [Unknown]

NARRATIVE: CASE EVENT DATE: 20191216
